FAERS Safety Report 7599209-8 (Version None)
Quarter: 2011Q3

REPORT INFORMATION
  Report Type: 
  Country: None (occurrence: None)
  Receive Date: 20110711
  Receipt Date: 20110111
  Transmission Date: 20111222
  Serious: No
  Sender: FDA-Public Use
  Company Number: US-BAYER-2011-003613

PATIENT
  Sex: Female

DRUGS (1)
  1. YAZ [Suspect]
     Dosage: UNK
     Route: 048
     Dates: start: 20101205, end: 20101211

REACTIONS (4)
  - GENITAL DISCHARGE [None]
  - NAUSEA [None]
  - ABDOMINAL PAIN LOWER [None]
  - WITHDRAWAL BLEED [None]
